FAERS Safety Report 18351882 (Version 1)
Quarter: 2020Q4

REPORT INFORMATION
  Report Type: Spontaneous
  Country: NL (occurrence: NL)
  Receive Date: 20201006
  Receipt Date: 20201006
  Transmission Date: 20210114
  Serious: Yes (Hospitalization, Other)
  Sender: FDA-Public Use
  Company Number: NL-JNJFOC-20200943425

PATIENT
  Age: 87 Year
  Sex: Female

DRUGS (2)
  1. DUROGESIC [Suspect]
     Active Substance: FENTANYL
     Route: 048
  2. DUROGESIC [Suspect]
     Active Substance: FENTANYL
     Indication: PRODUCT USED FOR UNKNOWN INDICATION
     Route: 062

REACTIONS (6)
  - Respiratory rate decreased [Unknown]
  - Incorrect route of product administration [Unknown]
  - Toxicity to various agents [Unknown]
  - Snoring [Recovered/Resolved]
  - Accidental exposure to product [Unknown]
  - Loss of consciousness [Recovered/Resolved]
